FAERS Safety Report 4355329-2 (Version None)
Quarter: 2004Q2

REPORT INFORMATION
  Report Type: 
  Country: None (occurrence: None)
  Receive Date: 20040510
  Receipt Date: 20040430
  Transmission Date: 20050107
  Serious: Yes (Other)
  Sender: FDA-Public Use
  Company Number: US-ROCHE-366502

PATIENT
  Age: 64 Year
  Sex: Male

DRUGS (2)
  1. INTERFERON ALFA [Suspect]
     Route: 065
  2. RIBAVIRIN [Suspect]
     Route: 065

REACTIONS (4)
  - EYE DISORDER [None]
  - MEDIASTINUM NEOPLASM [None]
  - MYASTHENIA GRAVIS [None]
  - NEOPLASM OF THYMUS [None]
